FAERS Safety Report 8852364 (Version 4)
Quarter: 2014Q2

REPORT INFORMATION
  Report Type: Report from Study
  Country: JP (occurrence: JP)
  Receive Date: 20121022
  Receipt Date: 20140407
  Transmission Date: 20141212
  Serious: Yes (Other)
  Sender: FDA-Public Use
  Company Number: JP-VERTEX PHARMACEUTICAL INC.-2012-023231

PATIENT
  Age: 53 Year
  Sex: Female

DRUGS (14)
  1. VX-950 (TELAPREVIR) [Suspect]
     Indication: CHRONIC HEPATITIS C
     Dosage: 2250 MG, QD
     Route: 048
     Dates: start: 20120828, end: 20120924
  2. VX-950 (TELAPREVIR) [Suspect]
     Dosage: 1500 MG, QD
     Route: 048
     Dates: start: 20120925, end: 20121112
  3. VX-950 (TELAPREVIR) [Suspect]
     Dosage: 750 MG, QD
     Route: 048
     Dates: start: 20121113, end: 20121119
  4. REBETOL [Suspect]
     Indication: CHRONIC HEPATITIS C
     Dosage: 700 MG, QD
     Route: 048
     Dates: start: 20120828, end: 20120917
  5. REBETOL [Suspect]
     Dosage: 600 MG, QD
     Route: 048
     Dates: start: 20120918, end: 20121001
  6. REBETOL [Suspect]
     Dosage: 400 MG, QD
     Route: 048
     Dates: start: 20121002, end: 20121112
  7. REBETOL [Suspect]
     Dosage: 200 MG, QD
     Route: 048
     Dates: start: 20121113, end: 20121217
  8. REBETOL [Suspect]
     Dosage: 300 MG, QD
     Route: 048
     Dates: start: 20121218, end: 20130114
  9. REBETOL [Suspect]
     Dosage: 400 MG, QD
     Route: 048
     Dates: start: 20130115, end: 20130205
  10. PEGINTRON [Suspect]
     Indication: CHRONIC HEPATITIS C
     Dosage: 1.5 ?G/KG, QW
     Route: 058
     Dates: start: 20120828
  11. PURSENNID [Concomitant]
     Dosage: 24 MG, QD
     Route: 048
     Dates: start: 20120828, end: 20120831
  12. MAGLAX [Concomitant]
     Dosage: 990 MG, QD
     Route: 048
     Dates: start: 20120911
  13. ALOSITOL [Concomitant]
     Dosage: 200 MG, QD
     Route: 048
     Dates: start: 20120827, end: 20121119
  14. ALOSITOL [Concomitant]
     Dosage: 100 MG, QD
     Route: 048
     Dates: start: 20121120, end: 20121204

REACTIONS (1)
  - White blood cell count decreased [Recovered/Resolved]
